FAERS Safety Report 4804411-1 (Version None)
Quarter: 2005Q4

REPORT INFORMATION
  Report Type: 
  Country: None (occurrence: None)
  Receive Date: 20051020
  Receipt Date: 20051018
  Transmission Date: 20060501
  Serious: Yes (Other)
  Sender: FDA-Public Use
  Company Number: US-GLAXOSMITHKLINE-A0578631A

PATIENT
  Sex: Female

DRUGS (3)
  1. VENTOLIN HFA [Suspect]
     Indication: ASTHMA
     Route: 055
  2. VENTOLIN [Suspect]
     Indication: ASTHMA
     Route: 065
  3. VENTOLIN [Suspect]
     Route: 065

REACTIONS (4)
  - ASTHMA [None]
  - CIRCULATORY COLLAPSE [None]
  - DRUG EXPOSURE DURING PREGNANCY [None]
  - EPISTAXIS [None]
